FAERS Safety Report 8619112-1 (Version None)
Quarter: 2012Q3

REPORT INFORMATION
  Report Type: 
  Country: None (occurrence: None)
  Receive Date: 20120824
  Receipt Date: 20120822
  Transmission Date: 20120928
  Serious: Yes (Death, Hospitalization, Other)
  Sender: FDA-Public Use
  Company Number: PHEH2008US03268

PATIENT
  Sex: Male

DRUGS (33)
  1. AREDIA [Suspect]
     Indication: METASTASES TO BONE
     Dosage: 90 MG, QMO
     Dates: start: 20050101
  2. CASODEX [Concomitant]
  3. VERSED [Concomitant]
  4. FUROSEMIDE [Concomitant]
     Dosage: 20 MG, DAILY
  5. OXYCONTIN [Concomitant]
     Dosage: 60 MG, BID
  6. PENICILLIN V POTASSIUM [Concomitant]
     Dosage: 400 MG, QID
  7. ZOMETA [Suspect]
  8. LISINOPRIL [Concomitant]
  9. ZETIA [Concomitant]
  10. SIMVASTATIN [Concomitant]
  11. LIPITOR [Concomitant]
  12. ASPIRIN [Concomitant]
     Dosage: 325 MG, DAILY
  13. METOPROLOL TARTRATE [Concomitant]
     Dosage: 100 MG, BID
  14. RANEXA [Concomitant]
     Dosage: 1000 MG, BID
  15. VERAPAMIL [Concomitant]
     Dosage: 2 MG, UNK
  16. INTEGRILIN [Concomitant]
  17. PLAVIX [Concomitant]
  18. MIDAZOLAM [Concomitant]
     Dosage: 2 MG, UNK
     Route: 042
  19. ASPIRIN [Concomitant]
  20. LOVAZA [Concomitant]
  21. MULTI-VITAMIN [Concomitant]
  22. OMEPRAZOLE [Concomitant]
     Dosage: 20 MG, DAILY
  23. SYMBICORT [Concomitant]
  24. NITROGLYCERIN [Concomitant]
  25. FENTANYL [Concomitant]
  26. CELEBREX [Concomitant]
  27. OXYCODONE HCL AND ACETAMINOPHEN [Concomitant]
  28. LORAZEPAM [Concomitant]
     Dosage: 05 MG, Q6H AS NEEDED
  29. HEPARIN [Concomitant]
  30. PROSCAR [Concomitant]
  31. LOPRESSOR [Concomitant]
  32. DILAUDID [Concomitant]
     Dosage: 8 MG, Q4H AS NEEDED
  33. ISOSORBIDE MONONITRATE [Concomitant]
     Dosage: 90 MG, BID

REACTIONS (55)
  - PAIN [None]
  - INFLAMMATION [None]
  - SUBMANDIBULAR MASS [None]
  - URETHRAL PAIN [None]
  - LYMPHOCYTE COUNT DECREASED [None]
  - DYSPHAGIA [None]
  - CONSTIPATION [None]
  - BACK PAIN [None]
  - OSTEOMYELITIS [None]
  - BONE LOSS [None]
  - PROSTATIC SPECIFIC ANTIGEN INCREASED [None]
  - ARTERIOSCLEROSIS [None]
  - SINUS TACHYCARDIA [None]
  - VENOUS INSUFFICIENCY [None]
  - ASTHENIA [None]
  - LUNG NEOPLASM [None]
  - NEUTROPHIL COUNT INCREASED [None]
  - ORAL CAVITY FISTULA [None]
  - RENAL FAILURE ACUTE [None]
  - GYNAECOMASTIA [None]
  - EMOTIONAL DISTRESS [None]
  - ANAEMIA [None]
  - CORONARY ARTERY STENOSIS [None]
  - HYPERPARATHYROIDISM [None]
  - FAILURE TO THRIVE [None]
  - SPINAL OSTEOARTHRITIS [None]
  - ELECTROCARDIOGRAM ST-T CHANGE [None]
  - TREMOR [None]
  - BONE DENSITY DECREASED [None]
  - ABSCESS SOFT TISSUE [None]
  - ORAL DISCHARGE [None]
  - HYPERHIDROSIS [None]
  - HEPATIC STEATOSIS [None]
  - OEDEMA PERIPHERAL [None]
  - BRONCHOSPASM [None]
  - DIVERTICULUM [None]
  - BLOOD GLUCOSE INCREASED [None]
  - OSTEONECROSIS OF JAW [None]
  - DEFORMITY [None]
  - BUNDLE BRANCH BLOCK RIGHT [None]
  - ANGINA UNSTABLE [None]
  - URINARY TRACT INFECTION [None]
  - SPINAL CORD COMPRESSION [None]
  - NAUSEA [None]
  - ALPHA HAEMOLYTIC STREPTOCOCCAL INFECTION [None]
  - NEOPLASM PROGRESSION [None]
  - NEOPLASM MALIGNANT [None]
  - PULMONARY CONGESTION [None]
  - HYDRONEPHROSIS [None]
  - EXOSTOSIS [None]
  - SUBCUTANEOUS ABSCESS [None]
  - INFECTION [None]
  - ANXIETY [None]
  - SWELLING [None]
  - INTERVERTEBRAL DISC DEGENERATION [None]
